FAERS Safety Report 5271407-8 (Version None)
Quarter: 2007Q1

REPORT INFORMATION
  Report Type: 
  Country: None (occurrence: None)
  Receive Date: 20070321
  Receipt Date: 20070225
  Transmission Date: 20070707
  Serious: Yes (Other)
  Sender: FDA-Public Use
  Company Number: NL-BRISTOL-MYERS SQUIBB COMPANY-13718622

PATIENT

DRUGS (1)
  1. ENTECAVIR [Suspect]

REACTIONS (1)
  - BLOOD HIV RNA DECREASED [None]
